FAERS Safety Report 16731564 (Version 5)
Quarter: 2023Q1

REPORT INFORMATION
  Report Type: Spontaneous
  Country: US (occurrence: US)
  Receive Date: 20190822
  Receipt Date: 20230327
  Transmission Date: 20230417
  Serious: No
  Sender: FDA-Public Use
  Company Number: US-SA-2019SA230280

PATIENT
  Age: 29 Year
  Sex: Male
  Weight: 146.49 kg

DRUGS (2)
  1. DUPIXENT [Suspect]
     Active Substance: DUPILUMAB
     Indication: Dermatitis atopic
     Dosage: 300 MG, QOW
     Route: 058
     Dates: start: 20190719
  2. COSENTYX [Concomitant]
     Active Substance: SECUKINUMAB
     Dosage: UNK
     Route: 065

REACTIONS (10)
  - Eyelid margin crusting [Unknown]
  - Eye discharge [Unknown]
  - Tinea cruris [Unknown]
  - Sleep disorder [Unknown]
  - Dermatitis atopic [Unknown]
  - Dry eye [Unknown]
  - Injection site pain [Unknown]
  - Dermatitis atopic [Unknown]
  - Product dose omission issue [Unknown]
  - Drug ineffective [Unknown]

NARRATIVE: CASE EVENT DATE: 20190101
